FAERS Safety Report 13697429 (Version 4)
Quarter: 2018Q1

REPORT INFORMATION
  Report Type: Spontaneous
  Country: DE (occurrence: DE)
  Receive Date: 20170628
  Receipt Date: 20180202
  Transmission Date: 20180508
  Serious: Yes (Hospitalization)
  Sender: FDA-Public Use
  Company Number: DE-TEVA-779906GER

PATIENT
  Age: 84 Year
  Sex: Male
  Weight: 69 kg

DRUGS (9)
  1. FUROSEMID [Suspect]
     Active Substance: FUROSEMIDE
     Indication: CARDIAC FAILURE
     Route: 048
     Dates: end: 20170529
  2. HYDROMORPHON [Concomitant]
     Active Substance: HYDROMORPHONE
     Indication: PAIN
     Dosage: 8 MILLIGRAM DAILY;
     Route: 048
     Dates: start: 20170509, end: 20170529
  3. NOVALGIN (METAMIZOLE SODIUM) [Concomitant]
     Active Substance: METAMIZOLE SODIUM
     Indication: PAIN
     Dosage: 4 DOSAGE FORMS DAILY;
     Route: 048
     Dates: end: 20170509
  4. TILIDIN [Concomitant]
     Active Substance: NALOXONE HYDROCHLORIDE\TILIDINE HYDROCHLORIDE
     Indication: PAIN
     Dosage: 2 DOSAGE FORMS DAILY;
     Route: 048
     Dates: end: 20170509
  5. MARCUMAR [Concomitant]
     Active Substance: PHENPROCOUMON
     Indication: ATRIAL FIBRILLATION
     Route: 048
  6. REVLIMID [Concomitant]
     Active Substance: LENALIDOMIDE
     Indication: PLASMA CELL MYELOMA
     Dates: start: 20170522, end: 20170522
  7. ALLOPURINOL. [Concomitant]
     Active Substance: ALLOPURINOL
     Indication: HYPERURICAEMIA
     Dosage: 1 DOSAGE FORMS DAILY;
     Route: 048
     Dates: end: 20170509
  8. FENTANYL LOZENGES [Suspect]
     Active Substance: FENTANYL CITRATE
     Indication: PAIN
     Dosage: UP TO 5 X/D
     Route: 048
     Dates: start: 20170509, end: 20170529
  9. MOVICOL [Suspect]
     Active Substance: POLYETHYLENE GLYCOL 3350\POTASSIUM CHLORIDE\SODIUM BICARBONATE\SODIUM CHLORIDE
     Dosage: 1 DOSAGE FORMS DAILY; EFFERVESCENT
     Route: 048
     Dates: end: 20170529

REACTIONS (3)
  - Erythema multiforme [Recovering/Resolving]
  - Dermatitis exfoliative generalised [Recovering/Resolving]
  - Lichenification [Recovering/Resolving]

NARRATIVE: CASE EVENT DATE: 20170514
